FAERS Safety Report 17441106 (Version 1)
Quarter: 2020Q1

REPORT INFORMATION
  Report Type: Not Available
  Country: US (occurrence: US)
  Receive Date: 20200220
  Receipt Date: 20200220
  Transmission Date: 20200409
  Serious: No
  Sender: FDA-Public Use
  Company Number: US-NEUROCRINE BIOSCIENCES INC.-2020NBI00441

PATIENT
  Age: 79 Year

DRUGS (2)
  1. INGREZZA [Suspect]
     Active Substance: VALBENAZINE
     Route: 048
     Dates: start: 2018
  2. INGREZZA [Suspect]
     Active Substance: VALBENAZINE
     Indication: TARDIVE DYSKINESIA
     Route: 048
     Dates: start: 20171201, end: 2018

REACTIONS (1)
  - Parkinsonism [Not Recovered/Not Resolved]

NARRATIVE: CASE EVENT DATE: 20180205
